FAERS Safety Report 11242423 (Version 2)
Quarter: 2015Q3

REPORT INFORMATION
  Report Type: Report from Study
  Country: DE (occurrence: DE)
  Receive Date: 20150707
  Receipt Date: 20150717
  Transmission Date: 20151125
  Serious: Yes (Death, Other)
  Sender: FDA-Public Use
  Company Number: DE-BEH-2015052241

PATIENT
  Age: 74 Year
  Sex: Female
  Weight: 68 kg

DRUGS (15)
  1. PRIVIGEN [Suspect]
     Active Substance: HUMAN IMMUNOGLOBULIN G
     Indication: IMMUNODEFICIENCY COMMON VARIABLE
     Dosage: INFUSION RATE MIN. 130ML/H, MAX. 390 ML/H
     Dates: start: 20140506, end: 20140506
  2. PRIVIGEN [Suspect]
     Active Substance: HUMAN IMMUNOGLOBULIN G
     Dosage: INFUSION RATE MIN. 130ML/H, MAX. 390 ML/H
     Dates: start: 20140722, end: 20140722
  3. ANTI-ASTHMATICS [Concomitant]
     Active Substance: UNSPECIFIED INGREDIENT
  4. PRIVIGEN [Suspect]
     Active Substance: HUMAN IMMUNOGLOBULIN G
     Dosage: INFUSION RATE MIN. 130ML/H, MAX. 390 ML/H
     Dates: start: 20140408, end: 20140408
  5. DIGITALIS GLYCOSIDES [Concomitant]
     Active Substance: DIGITALIS
  6. PRIVIGEN [Suspect]
     Active Substance: HUMAN IMMUNOGLOBULIN G
     Dosage: INFUSION RATE MIN. 130ML/H, MAX. 390 ML/H
     Dates: start: 20140408, end: 20140408
  7. GLUCOCORTICOIDS [Concomitant]
     Active Substance: UNSPECIFIED INGREDIENT
  8. PRIVIGEN [Suspect]
     Active Substance: HUMAN IMMUNOGLOBULIN G
     Dosage: INFUSION RATE MIN. 130ML/H, MAX. 390 ML/H
     Dates: start: 20140506, end: 20140506
  9. PRIVIGEN [Suspect]
     Active Substance: HUMAN IMMUNOGLOBULIN G
     Dosage: INFUSION RATE MIN. 130ML/H, MAX. 390 ML/H
     Dates: start: 20140722, end: 20140722
  10. ANTIHYPERTENSIVES [Concomitant]
     Active Substance: UNSPECIFIED INGREDIENT
  11. PRIVIGEN [Suspect]
     Active Substance: HUMAN IMMUNOGLOBULIN G
     Dosage: INFUSION RATE MIN. 130ML/H, MAX. 390 ML/H
     Dates: start: 20140821, end: 20140821
  12. PRIVIGEN [Suspect]
     Active Substance: HUMAN IMMUNOGLOBULIN G
     Dosage: INFUSION RATE MIN. 120ML/H, MAX. 480 ML/H
     Dates: start: 20140922, end: 20140922
  13. PRIVIGEN [Suspect]
     Active Substance: HUMAN IMMUNOGLOBULIN G
     Dosage: INFUSION RATE MIN. 130ML/H, MAX. 390 ML/H
     Dates: start: 20140821, end: 20140821
  14. PRIVIGEN [Suspect]
     Active Substance: HUMAN IMMUNOGLOBULIN G
     Dosage: INFUSION RATE MIN. 120ML/H, MAX. 480 ML/H
     Dates: start: 20140922, end: 20140922
  15. MINERAL SUPPLEMENTS [Concomitant]
     Active Substance: UNSPECIFIED INGREDIENT

REACTIONS (3)
  - Femoral neck fracture [Unknown]
  - Pseudomonas bronchitis [Recovering/Resolving]
  - Cardiopulmonary failure [Fatal]

NARRATIVE: CASE EVENT DATE: 20141103
